FAERS Safety Report 5804063-8 (Version None)
Quarter: 2008Q3

REPORT INFORMATION
  Report Type: 
  Country: None (occurrence: None)
  Receive Date: 20080707
  Receipt Date: 20080707
  Transmission Date: 20090109
  Serious: Yes (Hospitalization, Disabling)
  Sender: FDA-Public Use
  Company Number: None

PATIENT
  Age: 60 Year
  Sex: Male
  Weight: 77.1115 kg

DRUGS (1)
  1. ZOMETA [Suspect]
     Indication: RENAL CANCER METASTATIC
     Dosage: 4 MG MONTLY I.V.
     Route: 042
     Dates: start: 20020901, end: 20040101

REACTIONS (3)
  - BONE DISORDER [None]
  - INFECTION [None]
  - PAIN [None]
